FAERS Safety Report 5572242-3 (Version None)
Quarter: 2007Q4

REPORT INFORMATION
  Report Type: 
  Country: None (occurrence: None)
  Receive Date: 20071221
  Receipt Date: 20071212
  Transmission Date: 20080405
  Serious: Yes (Other)
  Sender: FDA-Public Use
  Company Number: US-PFIZER INC-2007103772

PATIENT
  Sex: Male

DRUGS (1)
  1. GLUCOTROL XL [Suspect]

REACTIONS (4)
  - ARTHRALGIA [None]
  - DRUG INEFFECTIVE [None]
  - KNEE OPERATION [None]
  - WEIGHT INCREASED [None]
